FAERS Safety Report 9285740 (Version 2)
Quarter: 2013Q2

REPORT INFORMATION
  Report Type: Spontaneous
  Country: FR (occurrence: FR)
  Receive Date: 20130513
  Receipt Date: 20130620
  Transmission Date: 20140414
  Serious: Yes (Hospitalization)
  Sender: FDA-Public Use
  Company Number: FR-PFIZER INC-2013145327

PATIENT
  Age: 58 Year
  Sex: Female

DRUGS (16)
  1. ATARAX [Suspect]
     Indication: ANXIETY
     Dosage: 100 MG, DAILY
     Route: 048
     Dates: end: 20130213
  2. SERTRALINE [Suspect]
     Indication: DEPRESSION
     Dosage: 50 MG, DAILY
     Route: 048
  3. ZOPICLONE [Suspect]
     Dosage: 15 MG, DAILY
     Route: 048
     Dates: end: 20130213
  4. PROPRANOLOL [Suspect]
     Indication: ANXIETY
     Dosage: 0.25 MG, 3X/DAY
     Route: 048
  5. SERESTA [Suspect]
     Indication: ANXIETY
     Dosage: 10 MG, 2X/DAY
     Route: 048
  6. TERCIAN [Suspect]
     Indication: PSYCHOTIC DISORDER
     Dosage: 25 MG, DAILY
     Route: 048
  7. LAROXYL [Suspect]
     Indication: DEPRESSION
     Dosage: 50 MG, DAILY
     Route: 048
  8. HYDROCORTISONE [Concomitant]
     Dosage: UNK
  9. IMUREL [Concomitant]
     Dosage: UNK
  10. LEVOTHYROX [Concomitant]
     Dosage: UNK
  11. LANTUS [Concomitant]
     Dosage: UNK
  12. HUMALOG [Concomitant]
     Dosage: UNK
  13. LEKOVIT CA [Concomitant]
     Dosage: UNK
  14. IMODIUM [Concomitant]
     Dosage: UNK
  15. FOSAMAX [Concomitant]
     Dosage: UNK
  16. PARACETAMOL [Concomitant]
     Dosage: UNK

REACTIONS (2)
  - Fall [Recovered/Resolved]
  - Medication error [Unknown]
